FAERS Safety Report 8490147-5 (Version None)
Quarter: 2012Q3

REPORT INFORMATION
  Report Type: 
  Country: None (occurrence: None)
  Receive Date: 20120705
  Receipt Date: 20120628
  Transmission Date: 20120928
  Serious: Yes (Death, Hospitalization)
  Sender: FDA-Public Use
  Company Number: JP-JNJFOC-20120613353

PATIENT
  Sex: Male
  Weight: 44 kg

DRUGS (7)
  1. VELCADE [Suspect]
     Route: 058
     Dates: start: 20120426
  2. VELCADE [Suspect]
     Route: 058
     Dates: start: 20120419
  3. OMEPRAZOLE [Concomitant]
     Route: 065
     Dates: start: 20120501, end: 20120527
  4. TRAMADOL HYDROCHLORIDE [Suspect]
     Indication: PRODUCT USED FOR UNKNOWN INDICATION
     Route: 065
  5. VELCADE [Suspect]
     Route: 058
     Dates: start: 20120405
  6. VELCADE [Suspect]
     Indication: MULTIPLE MYELOMA
     Route: 058
     Dates: start: 20120412
  7. DEXAMETHASONE SODIUM PHOSPHATE [Suspect]
     Indication: PRODUCT USED FOR UNKNOWN INDICATION
     Route: 065

REACTIONS (2)
  - CARDIAC FAILURE [None]
  - GASTRIC ULCER [None]
